FAERS Safety Report 8704596 (Version 3)
Quarter: 2012Q4

REPORT INFORMATION
  Report Type: 
  Country: AU (occurrence: AU)
  Receive Date: 20120803
  Receipt Date: 20121009
  Transmission Date: 20130627
  Serious: Yes (Other)
  Sender: FDA-Public Use
  Company Number: PHHY2012AU066452

PATIENT
  Age: 50 Year
  Sex: Male

DRUGS (10)
  1. CLOZARIL [Suspect]
     Indication: SCHIZOPHRENIA
     Dosage: 200 mg, at evening
     Route: 048
     Dates: start: 20060825
  2. SLOW K [Suspect]
     Dosage: 600 mg, in morning
  3. VALPROATE SODIUM [Concomitant]
     Dosage: 100 mg, at evening
  4. DIAZEPAM [Concomitant]
     Dosage: 5 mg, at evening
  5. LIPITOR [Concomitant]
     Dosage: 20 mg, at morning
  6. LISINOPRIL [Concomitant]
     Dosage: 10 mg, at morning
  7. BISOPROLOL [Concomitant]
     Dosage: 5 mg, at morning
  8. BISOPROLOL [Concomitant]
     Dosage: 7.5 mg, at morning
  9. FRUSEMIDE [Concomitant]
     Dosage: 20 mg, at morning
  10. WARFARIN [Concomitant]
     Dosage: UNK UKN, UNK

REACTIONS (4)
  - Tricuspid valve incompetence [Unknown]
  - Mitral valve incompetence [Unknown]
  - Dyspnoea [Unknown]
  - Dilatation ventricular [Unknown]
